FAERS Safety Report 25016339 (Version 1)
Quarter: 2025Q1

REPORT INFORMATION
  Report Type: Spontaneous
  Country: US (occurrence: US)
  Receive Date: 20250227
  Receipt Date: 20250227
  Transmission Date: 20250408
  Serious: Yes (Other)
  Sender: NOVO NORDISK
  Company Number: US-NOVOPROD-1374938

PATIENT
  Age: 64 Year
  Sex: Female

DRUGS (1)
  1. OZEMPIC [Suspect]
     Active Substance: SEMAGLUTIDE
     Indication: Type 2 diabetes mellitus
     Route: 058
     Dates: start: 20240217

REACTIONS (7)
  - Pneumonia [Unknown]
  - Rhinorrhoea [Unknown]
  - Cough [Unknown]
  - Ear infection [Unknown]
  - Chills [Unknown]
  - Wheezing [Unknown]
  - Constipation [Unknown]

NARRATIVE: CASE EVENT DATE: 20240217
